FAERS Safety Report 25051658 (Version 2)
Quarter: 2025Q3

REPORT INFORMATION
  Report Type: Spontaneous
  Country: RU (occurrence: RU)
  Receive Date: 20250307
  Receipt Date: 20250929
  Transmission Date: 20251020
  Serious: Yes (Other)
  Sender: ROCHE
  Company Number: RU-ROCHE-10000219070

PATIENT
  Age: 58 Year
  Sex: Male

DRUGS (3)
  1. ATEZOLIZUMAB [Suspect]
     Active Substance: ATEZOLIZUMAB
     Indication: Small cell lung cancer metastatic
     Route: 065
     Dates: start: 20230814
  2. CARBOPLATIN [Suspect]
     Active Substance: CARBOPLATIN
     Indication: Small cell lung cancer metastatic
     Route: 065
     Dates: start: 20230814
  3. ETOPOSIDE [Suspect]
     Active Substance: ETOPOSIDE
     Indication: Small cell lung cancer metastatic
     Route: 065
     Dates: start: 20230814

REACTIONS (7)
  - Metastases to lymph nodes [Unknown]
  - Axillary lymphadenectomy [Unknown]
  - Pulmonary fibrosis [Unknown]
  - Lymphadenopathy [Unknown]
  - Lymphoid tissue hyperplasia [Unknown]
  - Thyroid disorder [Unknown]
  - Hypothyroidism [Unknown]

NARRATIVE: CASE EVENT DATE: 20240901
